FAERS Safety Report 12229525 (Version 1)
Quarter: 2016Q1

REPORT INFORMATION
  Report Type: Spontaneous
  Country: US (occurrence: None)
  Receive Date: 20160331
  Receipt Date: 20160331
  Transmission Date: 20160526
  Serious: Yes (Other)
  Sender: FDA-Public Use
  Company Number: None

PATIENT
  Age: 23 Month
  Sex: Male
  Weight: 12.7 kg

DRUGS (2)
  1. CHILDRENS MOTRIN [Suspect]
     Active Substance: IBUPROFEN
     Indication: PYREXIA
     Dosage: 1 TEASPOON(S) EVERY 6 HOURS TAKEN BY MOUTH
     Route: 048
     Dates: start: 20160328, end: 20160330
  2. CHILDRENS MOTRIN [Suspect]
     Active Substance: IBUPROFEN
     Indication: PAIN
     Dosage: 1 TEASPOON(S) EVERY 6 HOURS TAKEN BY MOUTH
     Route: 048
     Dates: start: 20160328, end: 20160330

REACTIONS (3)
  - Abnormal behaviour [None]
  - Psychomotor hyperactivity [None]
  - Speech disorder [None]

NARRATIVE: CASE EVENT DATE: 20160329
